FAERS Safety Report 12172579 (Version 2)
Quarter: 2016Q1

REPORT INFORMATION
  Report Type: Report from Study
  Country: GB (occurrence: GB)
  Receive Date: 20160311
  Receipt Date: 20160315
  Transmission Date: 20160526
  Serious: No
  Sender: FDA-Public Use
  Company Number: GB-JNJFOC-20160304738

PATIENT
  Sex: Female

DRUGS (1)
  1. STELARA [Suspect]
     Active Substance: USTEKINUMAB
     Indication: PSORIASIS
     Route: 058
     Dates: start: 20131104

REACTIONS (3)
  - Stress [Unknown]
  - Psoriasis [Recovering/Resolving]
  - Liver function test abnormal [Unknown]
